FAERS Safety Report 9201595 (Version 1)
Quarter: 2013Q2

REPORT INFORMATION
  Report Type: Spontaneous
  Country: US (occurrence: None)
  Receive Date: 20130401
  Receipt Date: 20130401
  Transmission Date: 20140414
  Serious: Yes (Life-Threatening, Hospitalization)
  Sender: FDA-Public Use
  Company Number: None

PATIENT
  Age: 80 Year
  Sex: Male
  Weight: 82.6 kg

DRUGS (1)
  1. WARFARIN [Suspect]
     Dosage: MG   PO
     Route: 048

REACTIONS (1)
  - Haemorrhage [None]
